FAERS Safety Report 8364485-0 (Version None)
Quarter: 2012Q2

REPORT INFORMATION
  Report Type: 
  Country: None (occurrence: None)
  Receive Date: 20120516
  Receipt Date: 20120511
  Transmission Date: 20120825
  Serious: Yes (Hospitalization)
  Sender: FDA-Public Use
  Company Number: US-BAYER-2012-047501

PATIENT
  Age: 50 Year
  Sex: Female
  Weight: 79.365 kg

DRUGS (4)
  1. YASMIN [Suspect]
     Indication: MENOPAUSE
     Dosage: UNK, QD
  2. VICODIN [Concomitant]
     Dosage: 5/500MG
     Route: 048
     Dates: start: 20060203, end: 20100928
  3. OFLOXACIN [Concomitant]
     Dosage: 0.3 %, UNK
     Route: 047
     Dates: start: 20050810
  4. LEXAPRO [Concomitant]
     Dosage: 20 MG, UNK
     Route: 048
     Dates: start: 20040831, end: 20110622

REACTIONS (1)
  - DEEP VEIN THROMBOSIS [None]
